FAERS Safety Report 5447584-2 (Version None)
Quarter: 2007Q3

REPORT INFORMATION
  Report Type: 
  Country: None (occurrence: None)
  Receive Date: 20070905
  Receipt Date: 20070905
  Transmission Date: 20080115
  Serious: No
  Sender: FDA-Public Use
  Company Number: None

PATIENT
  Age: 7 Year
  Sex: Male

DRUGS (2)
  1. KETAMINE HCL [Suspect]
     Dosage: 24 MG
     Dates: start: 20070711, end: 20070711
  2. VERSED [Suspect]
     Dates: start: 20070711, end: 20070711

REACTIONS (1)
  - TONIC CLONIC MOVEMENTS [None]
